FAERS Safety Report 4577220-9 (Version None)
Quarter: 2005Q1

REPORT INFORMATION
  Report Type: 
  Country: None (occurrence: None)
  Receive Date: 20050210
  Receipt Date: 20050131
  Transmission Date: 20050727
  Serious: Yes (Hospitalization, Other)
  Sender: FDA-Public Use
  Company Number: PHBS2005BR01737

PATIENT
  Age: 15 Year
  Sex: Male

DRUGS (3)
  1. TRILEPTAL [Suspect]
     Indication: CONVULSION
     Route: 065
  2. CLONAZEPAM [Suspect]
     Route: 065
  3. VALPROATE SODIUM [Suspect]
     Route: 065

REACTIONS (11)
  - APHASIA [None]
  - CONVULSION [None]
  - DIFFICULTY IN WALKING [None]
  - FACIAL PARESIS [None]
  - FLAT AFFECT [None]
  - HYPOKINESIA [None]
  - LUNG DISORDER [None]
  - MOTOR DYSFUNCTION [None]
  - MUSCULAR WEAKNESS [None]
  - SCOLIOSIS [None]
  - SOMNOLENCE [None]
